FAERS Safety Report 7904397-7 (Version None)
Quarter: 2011Q4

REPORT INFORMATION
  Report Type: 
  Country: None (occurrence: None)
  Receive Date: 20111109
  Receipt Date: 20111103
  Transmission Date: 20120403
  Serious: Yes (Other)
  Sender: FDA-Public Use
  Company Number: US-ABBOTT-11P-163-0852083-00

PATIENT
  Age: 64 Year
  Sex: Female

DRUGS (12)
  1. FOLIC ACID [Concomitant]
     Indication: PRODUCT USED FOR UNKNOWN INDICATION
     Dosage: DAILY ON DAYS METHOTREXATE IS NOT TAKEN
     Route: 048
  2. CENTRUM [Concomitant]
     Indication: VITAMIN SUPPLEMENTATION
  3. FISH OIL [Concomitant]
     Indication: BLOOD CHOLESTEROL
     Route: 048
  4. METHOTREXATE [Concomitant]
  5. LISINOPRIL [Concomitant]
     Indication: BLOOD PRESSURE
  6. WATER PILL [Concomitant]
     Indication: BLOOD PRESSURE
  7. EFFEXOR XR [Concomitant]
     Indication: PAIN
     Route: 048
  8. LIPITOR [Concomitant]
     Indication: BLOOD CHOLESTEROL
     Route: 048
  9. HUMIRA [Suspect]
     Indication: PSORIATIC ARTHROPATHY
     Route: 058
     Dates: start: 20090401
  10. METHOTREXATE [Concomitant]
     Indication: PRODUCT USED FOR UNKNOWN INDICATION
     Route: 048
  11. SYNTHROID [Concomitant]
     Indication: THYROID DISORDER
     Route: 048
  12. GLUCOSAMINE CHONDROITIN [Concomitant]
     Indication: ARTHROPATHY

REACTIONS (16)
  - NASOPHARYNGITIS [None]
  - LIPOMA [None]
  - PSORIASIS [None]
  - DYSGEUSIA [None]
  - PRURITUS GENERALISED [None]
  - VULVOVAGINAL PRURITUS [None]
  - PRECANCEROUS CELLS PRESENT [None]
  - HYPERTENSION [None]
  - INJECTION SITE PAIN [None]
  - STOMATITIS [None]
  - BLOOD PH ABNORMAL [None]
  - UNEVALUABLE EVENT [None]
  - ORAL PRURITUS [None]
  - DYSPHONIA [None]
  - SINUSITIS [None]
  - BASAL CELL CARCINOMA [None]
